FAERS Safety Report 12634410 (Version 1)
Quarter: 2016Q3

REPORT INFORMATION
  Report Type: Spontaneous
  Country: US (occurrence: None)
  Receive Date: 20160808
  Receipt Date: 20160808
  Transmission Date: 20161109
  Serious: Yes (Hospitalization)
  Sender: FDA-Public Use
  Company Number: None

PATIENT
  Age: 60 Year
  Sex: Male
  Weight: 109 kg

DRUGS (7)
  1. TRAZODONE [Concomitant]
     Active Substance: TRAZODONE HYDROCHLORIDE
  2. LISINOPRIL. [Concomitant]
     Active Substance: LISINOPRIL
  3. FENOFIBRATE. [Concomitant]
     Active Substance: FENOFIBRATE
  4. ATORVASTATIN [Concomitant]
     Active Substance: ATORVASTATIN
  5. TAPENTADOL, 100MG DEPOMED [Suspect]
     Active Substance: TAPENTADOL
     Indication: PAIN
     Route: 048
     Dates: start: 20160623, end: 20160804
  6. DULOXETINE. [Concomitant]
     Active Substance: DULOXETINE
  7. OXYCODONE-ACETAMINOPHEN [Concomitant]
     Active Substance: ACETAMINOPHEN\OXYCODONE HYDROCHLORIDE

REACTIONS (6)
  - Eye movement disorder [None]
  - Feeling abnormal [None]
  - Dyskinesia [None]
  - Hallucination, auditory [None]
  - Seizure [None]
  - Dizziness [None]

NARRATIVE: CASE EVENT DATE: 20160804
